FAERS Safety Report 7879263-6 (Version None)
Quarter: 2011Q4

REPORT INFORMATION
  Report Type: 
  Country: None (occurrence: None)
  Receive Date: 20111101
  Receipt Date: 20111021
  Transmission Date: 20120403
  Serious: Yes (Hospitalization)
  Sender: FDA-Public Use
  Company Number: US-JNJFOC-20111010534

PATIENT
  Sex: Female
  Weight: 90.72 kg

DRUGS (6)
  1. MIRAPEX [Concomitant]
     Indication: RESTLESS LEGS SYNDROME
     Dates: start: 20060101
  2. KLONOPIN [Concomitant]
     Indication: RESTLESS LEGS SYNDROME
     Route: 048
     Dates: start: 20060101
  3. PAIN MEDICATION [Concomitant]
     Route: 048
  4. REMICADE [Suspect]
     Indication: PSORIASIS
     Route: 042
     Dates: start: 20100101
  5. MIGRANAL [Concomitant]
     Indication: MIGRAINE
     Route: 048
  6. NAUSEA MEDICATION [Concomitant]
     Indication: NAUSEA
     Route: 048

REACTIONS (5)
  - JOINT INJURY [None]
  - ARTHRITIS [None]
  - INFECTION [None]
  - RESTLESS LEGS SYNDROME [None]
  - THROMBOSIS [None]
